FAERS Safety Report 9831923 (Version 1)
Quarter: 2014Q1

REPORT INFORMATION
  Report Type: Spontaneous
  Country: US (occurrence: US)
  Receive Date: 20140121
  Receipt Date: 20140121
  Transmission Date: 20141002
  Serious: No
  Sender: FDA-Public Use
  Company Number: US-PFIZER INC-2014014365

PATIENT
  Sex: Female

DRUGS (1)
  1. XANAX [Suspect]
     Indication: TEMPOROMANDIBULAR JOINT SYNDROME
     Dosage: UNK

REACTIONS (4)
  - Off label use [Unknown]
  - Nightmare [Unknown]
  - Abnormal dreams [Unknown]
  - Bruxism [Unknown]
